FAERS Safety Report 16327831 (Version 1)
Quarter: 2019Q2

REPORT INFORMATION
  Report Type: Spontaneous
  Country: PL (occurrence: PL)
  Receive Date: 20190518
  Receipt Date: 20190518
  Transmission Date: 20190711
  Serious: Yes (Death, Other)
  Sender: FDA-Public Use
  Company Number: PL-009507513-1905POL008111

PATIENT
  Age: 79 Year
  Sex: Female

DRUGS (1)
  1. ZEPATIER [Suspect]
     Active Substance: ELBASVIR\GRAZOPREVIR
     Indication: CHRONIC HEPATITIS C
     Route: 048

REACTIONS (3)
  - Hepatic cirrhosis [Unknown]
  - Hepatocellular carcinoma [Unknown]
  - Death [Fatal]
